FAERS Safety Report 15862632 (Version 1)
Quarter: 2019Q1

REPORT INFORMATION
  Report Type: Spontaneous
  Country: US (occurrence: US)
  Receive Date: 20190124
  Receipt Date: 20190124
  Transmission Date: 20190417
  Serious: No
  Sender: FDA-Public Use
  Company Number: None

PATIENT
  Age: 85 Year
  Sex: Female
  Weight: 81 kg

DRUGS (12)
  1. NEXIUM [Concomitant]
     Active Substance: ESOMEPRAZOLE MAGNESIUM
  2. METFORMIN [Concomitant]
     Active Substance: METFORMIN HYDROCHLORIDE
  3. CRESTOR [Concomitant]
     Active Substance: ROSUVASTATIN CALCIUM
  4. AFINITOR [Suspect]
     Active Substance: EVEROLIMUS
     Indication: PANCREATIC CARCINOMA
     Route: 048
     Dates: start: 20181029
  5. NOVOLOG [Concomitant]
     Active Substance: INSULIN ASPART
  6. SINGULAIR [Concomitant]
     Active Substance: MONTELUKAST SODIUM
  7. PULMICORT TURBUHALER [Concomitant]
     Active Substance: BUDESONIDE
  8. XOPENEX [Concomitant]
     Active Substance: LEVALBUTEROL HYDROCHLORIDE
  9. ALBUTEROL. [Concomitant]
     Active Substance: ALBUTEROL
  10. METOPROLOL. [Concomitant]
     Active Substance: METOPROLOL
  11. ASPIRIN. [Concomitant]
     Active Substance: ASPIRIN
  12. LASIX [Concomitant]
     Active Substance: FUROSEMIDE

REACTIONS (3)
  - Fatigue [None]
  - Chronic obstructive pulmonary disease [None]
  - Decreased appetite [None]
